FAERS Safety Report 24364915 (Version 3)
Quarter: 2025Q3

REPORT INFORMATION
  Report Type: Report from Study
  Country: BR (occurrence: BR)
  Receive Date: 20240926
  Receipt Date: 20250813
  Transmission Date: 20251021
  Serious: Yes (Other)
  Sender: TAKEDA
  Company Number: BR-TAKEDA-2020TUS027634

PATIENT
  Age: 29 Year
  Sex: Female

DRUGS (7)
  1. VEDOLIZUMAB [Suspect]
     Active Substance: VEDOLIZUMAB
     Indication: Crohn^s disease
  2. VEDOLIZUMAB [Suspect]
     Active Substance: VEDOLIZUMAB
     Dosage: 300 MILLIGRAM, Q4WEEKS
     Dates: start: 2019
  3. Daflon [Concomitant]
     Indication: Peripheral vascular disorder
     Dosage: 1000 MILLIGRAM, QD
  4. Daflon [Concomitant]
     Indication: Thrombosis
  5. Capilarema [Concomitant]
     Indication: Peripheral vascular disorder
     Dosage: 75 MILLIGRAM, QD
  6. Capilarema [Concomitant]
     Indication: Thrombosis
  7. CORTISONE [Concomitant]
     Active Substance: CORTISONE

REACTIONS (5)
  - Cholangitis sclerosing [Unknown]
  - Scleroderma [Unknown]
  - Crohn^s disease [Unknown]
  - Hepatic enzyme abnormal [Unknown]
  - Hypersensitivity [Recovering/Resolving]

NARRATIVE: CASE EVENT DATE: 20200613
